FAERS Safety Report 6742152-4 (Version None)
Quarter: 2010Q2

REPORT INFORMATION
  Report Type: 
  Country: None (occurrence: None)
  Receive Date: 20100524
  Receipt Date: 20100514
  Transmission Date: 20101027
  Serious: Yes (Hospitalization)
  Sender: FDA-Public Use
  Company Number: WAES 1003USA00528

PATIENT
  Age: 65 Year
  Sex: Female

DRUGS (10)
  1. CAP VORINOSTAT [Suspect]
     Indication: MULTIPLE MYELOMA
     Dosage: 400 MG; 300 MG/DAILY
     Route: 048
     Dates: start: 20100222, end: 20100305
  2. CAP VORINOSTAT [Suspect]
     Indication: MULTIPLE MYELOMA
     Dosage: 400 MG; 300 MG/DAILY
     Route: 048
     Dates: start: 20100315, end: 20100410
  3. CAP VORINOSTAT [Suspect]
     Indication: MULTIPLE MYELOMA
     Dosage: 400 MG; 300 MG/DAILY
     Route: 048
     Dates: start: 20100201
  4. BORTEZOMIB [Suspect]
     Indication: MULTIPLE MYELOMA
     Dosage: 1.3 MG/M(2); 2.3 MG; 1 MG/M(2)
     Route: 042
     Dates: start: 20100222, end: 20100409
  5. BORTEZOMIB [Suspect]
     Indication: MULTIPLE MYELOMA
     Dosage: 1.3 MG/M(2); 2.3 MG; 1 MG/M(2)
     Route: 042
     Dates: start: 20100201
  6. BORTEZOMIB [Suspect]
     Indication: MULTIPLE MYELOMA
     Dosage: 1.3 MG/M(2); 2.3 MG; 1 MG/M(2)
     Route: 042
     Dates: start: 20100426
  7. ACC (ACETYCYSTELINE) [Concomitant]
  8. ACIC [Concomitant]
  9. DIPYRONE TAB [Concomitant]
  10. PANTOPRAZOLE SODIUM [Concomitant]

REACTIONS (15)
  - BLOOD CALCIUM DECREASED [None]
  - BLOOD CREATININE INCREASED [None]
  - BLOOD SODIUM DECREASED [None]
  - BUNDLE BRANCH BLOCK RIGHT [None]
  - CONJUNCTIVITIS [None]
  - DIARRHOEA [None]
  - HAEMATOCRIT DECREASED [None]
  - HAEMOGLOBIN DECREASED [None]
  - PLATELET COUNT DECREASED [None]
  - PROTHROMBIN TIME PROLONGED [None]
  - RED BLOOD CELL COUNT DECREASED [None]
  - SINUSITIS [None]
  - TACHYPNOEA [None]
  - THROMBOSIS [None]
  - UPPER RESPIRATORY TRACT INFECTION [None]
